APPROVED DRUG PRODUCT: DIVALPROEX SODIUM
Active Ingredient: DIVALPROEX SODIUM
Strength: EQ 500MG VALPROIC ACID
Dosage Form/Route: TABLET, DELAYED RELEASE;ORAL
Application: A090554 | Product #003 | TE Code: AB
Applicant: AUROBINDO PHARMA LIMITED
Approved: Apr 21, 2011 | RLD: No | RS: No | Type: RX